FAERS Safety Report 25548648 (Version 1)
Quarter: 2025Q3

REPORT INFORMATION
  Report Type: Spontaneous
  Country: US (occurrence: None)
  Receive Date: 20250712
  Receipt Date: 20250712
  Transmission Date: 20251020
  Serious: Yes (Other)
  Sender: FDA-CTU
  Company Number: None

PATIENT
  Age: 77 Year
  Sex: Female
  Weight: 46.8 kg

DRUGS (10)
  1. MIEBO [Suspect]
     Active Substance: PERFLUOROHEXYLOCTANE
     Indication: Dry eye
     Dosage: 1 DROP(S) EVERY 4 HOURS OPHTHALMIC?
     Route: 047
     Dates: start: 20250709, end: 20250711
  2. Atavastin [Concomitant]
  3. LINZESS [Concomitant]
     Active Substance: LINACLOTIDE
  4. DOXYCYCLINE [Concomitant]
     Active Substance: DOXYCYCLINE
  5. BACLOFEN [Concomitant]
     Active Substance: BACLOFEN
  6. CHOLECALCIFEROL [Concomitant]
     Active Substance: CHOLECALCIFEROL
  7. FISH OIL [Concomitant]
     Active Substance: FISH OIL
  8. LUTEIN [Concomitant]
     Active Substance: LUTEIN
  9. ZEAXANTHIN [Concomitant]
     Active Substance: ZEAXANTHIN
  10. GUAIFENESIN [Concomitant]
     Active Substance: GUAIFENESIN

REACTIONS (5)
  - Instillation site irritation [None]
  - Instillation site pain [None]
  - Therapeutic product effect decreased [None]
  - Eye discharge [None]
  - Eye irritation [None]

NARRATIVE: CASE EVENT DATE: 20250709
